FAERS Safety Report 9325753 (Version 2)
Quarter: 2014Q1

REPORT INFORMATION
  Report Type: Report from Study
  Country: GB (occurrence: GB)
  Receive Date: 20130604
  Receipt Date: 20140211
  Transmission Date: 20141002
  Serious: Yes (Other)
  Sender: FDA-Public Use
  Company Number: GB-JNJFOC-20130521915

PATIENT
  Age: 66 Year
  Sex: Female

DRUGS (7)
  1. SIMPONI [Suspect]
     Indication: PSORIATIC ARTHROPATHY
     Route: 058
     Dates: start: 20130522, end: 20130817
  2. SIMPONI [Suspect]
     Indication: PSORIATIC ARTHROPATHY
     Route: 058
     Dates: start: 201302
  3. TRAMADOL/APAP [Concomitant]
     Indication: PAIN
     Route: 065
  4. METHOTREXATE [Concomitant]
     Indication: PSORIATIC ARTHROPATHY
     Route: 065
  5. AMITRIPTYLINE [Concomitant]
     Indication: NEURALGIA
     Route: 065
  6. PARACETAMOL [Concomitant]
     Indication: PAIN
     Route: 065
  7. RAMIPRIL [Concomitant]
     Route: 065

REACTIONS (4)
  - Femoral neck fracture [Recovering/Resolving]
  - Local swelling [Not Recovered/Not Resolved]
  - Joint swelling [Not Recovered/Not Resolved]
  - Drug ineffective [Unknown]
